FAERS Safety Report 16476087 (Version 2)
Quarter: 2019Q3

REPORT INFORMATION
  Report Type: Spontaneous
  Country: IT (occurrence: IT)
  Receive Date: 20190625
  Receipt Date: 20190716
  Transmission Date: 20191004
  Serious: Yes (Other)
  Sender: FDA-Public Use
  Company Number: IT-ELI_LILLY_AND_COMPANY-IT201906010609

PATIENT
  Age: 89 Year
  Sex: Female

DRUGS (2)
  1. FORSTEO 250UG/ML [Suspect]
     Active Substance: TERIPARATIDE
     Indication: OSTEOPOROSIS POSTMENOPAUSAL
     Dosage: UNK, UNKNOWN
     Route: 065
     Dates: start: 2017
  2. FORSTEO 250UG/ML [Suspect]
     Active Substance: TERIPARATIDE
     Indication: SPINAL COMPRESSION FRACTURE

REACTIONS (4)
  - Cough [Unknown]
  - Lung neoplasm malignant [Unknown]
  - Tissue polypeptide antigen increased [Unknown]
  - Pancreatitis [Unknown]

NARRATIVE: CASE EVENT DATE: 2017
